FAERS Safety Report 5640939-2 (Version None)
Quarter: 2008Q1

REPORT INFORMATION
  Report Type: 
  Country: None (occurrence: None)
  Receive Date: 20080225
  Receipt Date: 20080218
  Transmission Date: 20080703
  Serious: Yes (Other)
  Sender: FDA-Public Use
  Company Number: A0711041A

PATIENT
  Age: 19 Year
  Sex: Male

DRUGS (3)
  1. WELLBUTRIN [Suspect]
     Indication: DEPRESSION
     Dosage: 150 MG / PER DAY / ORAL
     Route: 048
     Dates: start: 20080204
  2. PAXIL [Suspect]
     Indication: DEPRESSION
  3. FLUOXETINE HCL [Suspect]
     Indication: DEPRESSION

REACTIONS (3)
  - BLINDNESS [None]
  - RASH GENERALISED [None]
  - VISUAL ACUITY REDUCED [None]
